FAERS Safety Report 12466912 (Version 1)
Quarter: 2016Q2

REPORT INFORMATION
  Report Type: Spontaneous
  Country: US (occurrence: None)
  Receive Date: 20160614
  Receipt Date: 20160614
  Transmission Date: 20160815
  Serious: Yes (Other)
  Sender: FDA-Public Use
  Company Number: None

PATIENT
  Age: 53 Year
  Sex: Female
  Weight: 70.31 kg

DRUGS (5)
  1. VALTREX [Concomitant]
     Active Substance: VALACYCLOVIR HYDROCHLORIDE
  2. TENS SOMA [Concomitant]
  3. TRAMADOL. [Concomitant]
     Active Substance: TRAMADOL
  4. BUPIVACAINE. [Suspect]
     Active Substance: BUPIVACAINE
     Indication: SPINAL ANAESTHESIA
     Dosage: -- INJECTED INTO SPINAL AREA
     Route: 024
     Dates: start: 20160502
  5. CLONAZAPAM [Concomitant]
     Active Substance: CLONAZEPAM

REACTIONS (2)
  - Drug hypersensitivity [None]
  - Urinary retention [None]

NARRATIVE: CASE EVENT DATE: 20160502
